FAERS Safety Report 15332347 (Version 1)
Quarter: 2018Q3

REPORT INFORMATION
  Report Type: Spontaneous
  Country: US (occurrence: US)
  Receive Date: 20180829
  Receipt Date: 20180829
  Transmission Date: 20181010
  Serious: Yes (Hospitalization)
  Sender: FDA-Public Use
  Company Number: US-CELGENEUS-USA-20180808372

PATIENT
  Age: 65 Year
  Sex: Female

DRUGS (4)
  1. POMALYST [Suspect]
     Active Substance: POMALIDOMIDE
     Indication: OFF LABEL USE
  2. POMALYST [Suspect]
     Active Substance: POMALIDOMIDE
     Indication: PLASMA CELL MYELOMA RECURRENT
     Dosage: 2 MILLIGRAM
     Route: 048
     Dates: start: 20151222
  3. POMALYST [Suspect]
     Active Substance: POMALIDOMIDE
     Indication: CARTILAGE NEOPLASM
  4. POMALYST [Suspect]
     Active Substance: POMALIDOMIDE
     Indication: BONE NEOPLASM
     Dosage: 2 MILLIGRAM
     Route: 048
     Dates: start: 201612

REACTIONS (1)
  - Pneumonia [Unknown]

NARRATIVE: CASE EVENT DATE: 20180823
